FAERS Safety Report 5704814-7 (Version None)
Quarter: 2008Q2

REPORT INFORMATION
  Report Type: 
  Country: None (occurrence: None)
  Receive Date: 20080414
  Receipt Date: 20080407
  Transmission Date: 20081010
  Serious: Yes (Death, Life-Threatening, Hospitalization, Disabling, Other)
  Sender: FDA-Public Use
  Company Number: US-AVENTIS-200719824GDDC

PATIENT
  Age: 51 Year
  Sex: Female
  Weight: 93.89 kg

DRUGS (30)
  1. TAXOTERE [Suspect]
     Route: 042
     Dates: start: 20070821, end: 20070821
  2. TAXOTERE [Suspect]
     Route: 042
     Dates: start: 20070925, end: 20070925
  3. INVESTIGATIONAL DRUG [Suspect]
     Dosage: DOSE: 200 MG FROM DAY 1 TO DAY 14
     Route: 048
     Dates: start: 20070821, end: 20070828
  4. INVESTIGATIONAL DRUG [Suspect]
     Route: 048
     Dates: start: 20070829, end: 20070909
  5. PROMETHAZINE [Concomitant]
     Indication: NAUSEA
     Dates: start: 20070301, end: 20070828
  6. TEMAZEPAM [Concomitant]
     Indication: INSOMNIA
     Dates: start: 20070601, end: 20071001
  7. VICODIN [Concomitant]
     Indication: PAIN
     Dosage: DOSE: 6/500
     Dates: start: 20030701, end: 20070828
  8. VICODIN [Concomitant]
     Dosage: DOSE: UNK
     Dates: start: 20070718, end: 20070720
  9. ACYCLOVIR [Concomitant]
     Indication: HERPES SIMPLEX
     Dates: start: 20070821, end: 20070828
  10. ACYCLOVIR [Concomitant]
     Dates: start: 20070821, end: 20070828
  11. CLOPIDOGREL BISULFATE [Concomitant]
     Dates: start: 20030201, end: 20071001
  12. METOPROLOL [Concomitant]
     Indication: HYPERTENSION
     Dates: start: 20030201, end: 20071001
  13. BUPROPION HYDROCHLORIDE [Concomitant]
     Dates: start: 20060101, end: 20070828
  14. BUPROPION HYDROCHLORIDE [Concomitant]
     Indication: DEPRESSION
     Dates: start: 20060101, end: 20070828
  15. MORPHINE SULFATE [Concomitant]
     Indication: PAIN
     Dates: start: 20070601, end: 20070828
  16. WARFARIN SODIUM [Concomitant]
     Dates: start: 20070601, end: 20070828
  17. OXYCOCET [Concomitant]
     Indication: PAIN
     Dosage: DOSE: 325/7.5
     Dates: start: 20070301, end: 20071001
  18. QUININE SULFATE [Concomitant]
     Dates: start: 20070201, end: 20070828
  19. TIZANIDINE HYDROCHLORIDE [Concomitant]
     Dates: start: 20030701, end: 20070824
  20. CEFADROXIL [Concomitant]
     Indication: ORAL INFECTION
     Dates: start: 20070821, end: 20070828
  21. MAALOX, LIDOCAINE, BENADRYL [Concomitant]
     Indication: PAIN
     Dosage: DOSE QUANTITY: 1; DOSE UNIT: TABLESPOON
     Dates: start: 20070821, end: 20070828
  22. MAALOX, LIDOCAINE, BENADRYL [Concomitant]
     Dosage: DOSE QUANTITY: 1; DOSE UNIT: TABLESPOON
     Dates: start: 20070821, end: 20070828
  23. DIPHENHYDRAMINE [Concomitant]
     Route: 042
     Dates: start: 20070821, end: 20071001
  24. DEXAMETHASONE [Concomitant]
     Dosage: DOSE: 8 MG FOR 3 DAYS
     Dates: start: 20070820
  25. DEXAMETHASONE [Concomitant]
     Route: 042
     Dates: start: 20070821, end: 20071001
  26. CIMETIDINE [Concomitant]
     Indication: NAUSEA
     Dates: start: 20070821, end: 20071001
  27. DOLASETRON MESILATE [Concomitant]
     Indication: NAUSEA
     Dates: start: 20070821, end: 20071001
  28. MORPHINE SULFATE [Concomitant]
     Indication: PAIN
     Dates: start: 20070914, end: 20071001
  29. FUROSEMIDE [Concomitant]
     Dates: start: 20070914, end: 20071001
  30. FUROSEMIDE [Concomitant]
     Dates: start: 20070914, end: 20071001

REACTIONS (10)
  - ANAEMIA [None]
  - CLOSTRIDIUM DIFFICILE COLITIS [None]
  - CONDITION AGGRAVATED [None]
  - CONVULSION [None]
  - FUNGAL SEPSIS [None]
  - HYPOKALAEMIA [None]
  - HYPOMAGNESAEMIA [None]
  - NEUTROPENIA [None]
  - NEUTROPENIC SEPSIS [None]
  - PERICARDIAL EFFUSION [None]
